FAERS Safety Report 12309913 (Version 8)
Quarter: 2021Q1

REPORT INFORMATION
  Report Type: Report from Study
  Country: CA (occurrence: CA)
  Receive Date: 20160427
  Receipt Date: 20210210
  Transmission Date: 20210419
  Serious: Yes (Death, Hospitalization, Other)
  Sender: FDA-Public Use
  Company Number: CA-GLAXOSMITHKLINE-CA2016GSK058234

PATIENT
  Age: 54 Year
  Sex: Female
  Weight: 96 kg

DRUGS (11)
  1. BELIMUMAB [Suspect]
     Active Substance: BELIMUMAB
     Dosage: UNK
     Route: 042
     Dates: start: 20120112
  2. RITUXIMAB. [Concomitant]
     Active Substance: RITUXIMAB
     Dosage: 1000 MG, UNK
     Dates: start: 20080222, end: 20080307
  3. BELIMUMAB [Suspect]
     Active Substance: BELIMUMAB
     Dosage: 800 MG, UNK
     Route: 042
     Dates: start: 20120112
  4. BELIMUMAB [Suspect]
     Active Substance: BELIMUMAB
     Dosage: 800 MG, UNK
     Route: 042
  5. CELEXA [Concomitant]
     Active Substance: CITALOPRAM HYDROBROMIDE
     Dosage: 10 MG, QD
     Route: 048
     Dates: start: 20160218
  6. BELIMUMAB [Suspect]
     Active Substance: BELIMUMAB
     Dosage: UNK
     Route: 042
     Dates: end: 20160401
  7. CYCLOPHOSPHAMIDE. [Concomitant]
     Active Substance: CYCLOPHOSPHAMIDE
     Dosage: 1000 MG/M2, UNK
     Dates: start: 20060316, end: 20060817
  8. AZATHIOPRINE. [Concomitant]
     Active Substance: AZATHIOPRINE
     Dosage: 125 MG, QD
     Dates: start: 20030416, end: 20030917
  9. CELEXA [Concomitant]
     Active Substance: CITALOPRAM HYDROBROMIDE
     Dosage: 20 MG
     Route: 048
  10. BELIMUMAB [Suspect]
     Active Substance: BELIMUMAB
     Indication: SYSTEMIC LUPUS ERYTHEMATOSUS
     Dosage: 10 MG/KG, UNK
     Route: 042
     Dates: start: 20120112, end: 20160401
  11. MYCOPHENOLATE MOFETIL. [Concomitant]
     Active Substance: MYCOPHENOLATE MOFETIL
     Dosage: 1000 MG, BID
     Dates: start: 20030918, end: 20060308

REACTIONS (10)
  - Chills [Unknown]
  - Pyrexia [Recovered/Resolved]
  - Flank pain [Recovered/Resolved]
  - Nasopharyngitis [Unknown]
  - Weight decreased [Unknown]
  - Ureterolithiasis [Recovered/Resolved]
  - White blood cell count increased [Recovered/Resolved]
  - Urosepsis [Fatal]
  - Nephrolithiasis [Unknown]
  - Urosepsis [Recovered/Resolved]

NARRATIVE: CASE EVENT DATE: 20120403
